FAERS Safety Report 6250303-3 (Version None)
Quarter: 2009Q2

REPORT INFORMATION
  Report Type: 
  Country: None (occurrence: None)
  Receive Date: 20090626
  Receipt Date: 20090626
  Transmission Date: 20091009
  Serious: Yes (Other)
  Sender: FDA-Public Use
  Company Number: None

PATIENT
  Sex: Female
  Weight: 65.7716 kg

DRUGS (2)
  1. ATIVAN [Suspect]
     Indication: ANXIETY
     Dosage: 2 MG ONCE DAILY ORAL EVERY DAY - ITS USELESS
     Route: 048
  2. ATIVAN [Suspect]
     Indication: INSOMNIA
     Dosage: 2 MG ONCE DAILY ORAL EVERY DAY - ITS USELESS
     Route: 048

REACTIONS (4)
  - INCORRECT DOSE ADMINISTERED [None]
  - INSOMNIA [None]
  - NO THERAPEUTIC RESPONSE [None]
  - PRODUCT COMPOUNDING QUALITY ISSUE [None]
